FAERS Safety Report 18436524 (Version 1)
Quarter: 2020Q4

REPORT INFORMATION
  Report Type: Spontaneous
  Country: US (occurrence: US)
  Receive Date: 20201028
  Receipt Date: 20201028
  Transmission Date: 20210114
  Serious: Yes (Other)
  Sender: FDA-Public Use
  Company Number: None

PATIENT
  Age: 39 Year
  Sex: Female
  Weight: 99.79 kg

DRUGS (4)
  1. NEXPLANON [Suspect]
     Active Substance: ETONOGESTREL
     Indication: ADNEXA UTERI PAIN
  2. PEPCID [Concomitant]
     Active Substance: FAMOTIDINE
  3. PREVACID [Concomitant]
     Active Substance: LANSOPRAZOLE
  4. NEXPLANON [Suspect]
     Active Substance: ETONOGESTREL
     Indication: MENORRHAGIA

REACTIONS (20)
  - Insomnia [None]
  - Phobia [None]
  - Irritability [None]
  - Weight loss poor [None]
  - Panic attack [None]
  - Pain [None]
  - Feeling abnormal [None]
  - Nightmare [None]
  - Migraine [None]
  - Weight increased [None]
  - Acne cystic [None]
  - Loss of libido [None]
  - Alopecia [None]
  - Disturbance in attention [None]
  - Loss of consciousness [None]
  - Memory impairment [None]
  - Irritable bowel syndrome [None]
  - Gastrointestinal disorder [None]
  - Fatigue [None]
  - Anxiety [None]

NARRATIVE: CASE EVENT DATE: 20201028
